FAERS Safety Report 7307297-9 (Version None)
Quarter: 2011Q1

REPORT INFORMATION
  Report Type: 
  Country: None (occurrence: None)
  Receive Date: 20110223
  Receipt Date: 20110216
  Transmission Date: 20110831
  Serious: Yes (Other)
  Sender: FDA-Public Use
  Company Number: US-JNJFOC-20100805159

PATIENT

DRUGS (1)
  1. LEVAQUIN [Suspect]
     Indication: INFLUENZA
     Route: 048

REACTIONS (3)
  - TRIGGER FINGER [None]
  - TENDON RUPTURE [None]
  - ROTATOR CUFF SYNDROME [None]
